FAERS Safety Report 5960914-8 (Version None)
Quarter: 2008Q4

REPORT INFORMATION
  Report Type: 
  Country: None (occurrence: None)
  Receive Date: 20081121
  Receipt Date: 20081114
  Transmission Date: 20090506
  Serious: Yes (Other)
  Sender: FDA-Public Use
  Company Number: FI-JNJFOC-20081103218

PATIENT
  Age: 3 Decade
  Sex: Male
  Weight: 100 kg

DRUGS (4)
  1. CONCERTA [Suspect]
     Route: 048
  2. CONCERTA [Suspect]
     Indication: ATTENTION DEFICIT/HYPERACTIVITY DISORDER
     Route: 048
  3. RISPERDAL [Concomitant]
     Route: 048
  4. NEULACTIL [Concomitant]
     Route: 065

REACTIONS (4)
  - INSOMNIA [None]
  - MANIA [None]
  - RESTLESSNESS [None]
  - SUICIDAL IDEATION [None]
